FAERS Safety Report 7450420-6 (Version None)
Quarter: 2011Q2

REPORT INFORMATION
  Report Type: 
  Country: None (occurrence: None)
  Receive Date: 20110429
  Receipt Date: 20110429
  Transmission Date: 20111010
  Serious: Yes (Hospitalization)
  Sender: FDA-Public Use
  Company Number: None

PATIENT
  Age: 64 Year
  Sex: Male
  Weight: 70 kg

DRUGS (2)
  1. RITUXIMAB 100 MG, 500 MG GENETECH [Suspect]
     Dosage: 600 MG ONCE IV 1 DOSE
     Route: 042
     Dates: start: 20110325, end: 20110325
  2. BENDAMUSTINE 25 MG, 100 MG CEPHALON ONCOLOGY [Suspect]
     Indication: MANTLE CELL LYMPHOMA
     Dosage: 175 MG Q24H X2 DOSES IV
     Route: 042
     Dates: start: 20110323, end: 20110324

REACTIONS (11)
  - RASH PRURITIC [None]
  - RASH ERYTHEMATOUS [None]
  - HYPOTENSION [None]
  - SKIN EXFOLIATION [None]
  - ADVERSE DRUG REACTION [None]
  - SPLENOMEGALY [None]
  - SWELLING FACE [None]
  - DYSPNOEA [None]
  - OEDEMA PERIPHERAL [None]
  - EOSINOPHILIA [None]
  - PARANEOPLASTIC SYNDROME [None]
